FAERS Safety Report 14565369 (Version 1)
Quarter: 2018Q1

REPORT INFORMATION
  Report Type: Spontaneous
  Country: FR (occurrence: FR)
  Receive Date: 20180223
  Receipt Date: 20180223
  Transmission Date: 20180509
  Serious: Yes (Other)
  Sender: FDA-Public Use
  Company Number: FR-CIPLA LTD.-2018FR05823

PATIENT

DRUGS (3)
  1. FOLINIC ACID [Suspect]
     Active Substance: LEUCOVORIN
     Indication: RECTOSIGMOID CANCER METASTATIC
     Dosage: UNKNOWN
     Route: 042
     Dates: start: 20171206, end: 20171206
  2. IRINOTECAN [Suspect]
     Active Substance: IRINOTECAN
     Indication: RECTOSIGMOID CANCER METASTATIC
     Dosage: UNKNOWN
     Route: 042
     Dates: start: 20171206, end: 20171206
  3. FLUOROURACIL. [Suspect]
     Active Substance: FLUOROURACIL
     Indication: RECTOSIGMOID CANCER METASTATIC
     Dosage: UNKNOWN
     Route: 042
     Dates: start: 20171206, end: 20171206

REACTIONS (4)
  - Dyspnoea [Recovered/Resolved]
  - Laryngeal pain [Recovered/Resolved]
  - Hot flush [Recovered/Resolved]
  - Chest pain [Recovered/Resolved]

NARRATIVE: CASE EVENT DATE: 20171206
